FAERS Safety Report 15963912 (Version 1)
Quarter: 2019Q1

REPORT INFORMATION
  Report Type: Report from Study
  Country: FR (occurrence: FR)
  Receive Date: 20190214
  Receipt Date: 20190214
  Transmission Date: 20190417
  Serious: Yes (Other)
  Sender: FDA-Public Use
  Company Number: FR-TEVA-2019-FR-1010317

PATIENT
  Age: 54 Year
  Sex: Female

DRUGS (7)
  1. ETOPOSIDE. [Concomitant]
     Active Substance: ETOPOSIDE
     Route: 065
  2. OXALIPLATIN. [Suspect]
     Active Substance: OXALIPLATIN
     Indication: LYMPHOMA
     Route: 065
     Dates: start: 201503
  3. MELPHALAN. [Concomitant]
     Active Substance: MELPHALAN
     Route: 065
  4. DEXAMETHASONE. [Concomitant]
     Active Substance: DEXAMETHASONE
     Indication: LYMPHOMA
     Route: 065
     Dates: start: 201503
  5. RITUXIMAB. [Concomitant]
     Active Substance: RITUXIMAB
     Indication: LYMPHOMA
     Route: 065
     Dates: start: 201503
  6. CYTARABINE. [Concomitant]
     Active Substance: CYTARABINE
     Indication: LYMPHOMA
     Dosage: HIGH DOSE,
     Route: 065
     Dates: start: 201503
  7. BENDAMUSTINE [Concomitant]
     Active Substance: BENDAMUSTINE
     Route: 065

REACTIONS (7)
  - Hepatomegaly [Recovered/Resolved]
  - Hepatic encephalopathy [Recovered/Resolved]
  - Venoocclusive disease [Recovered/Resolved]
  - Coagulation factor V level decreased [Recovered/Resolved]
  - Jaundice [Recovered/Resolved]
  - Weight increased [Recovered/Resolved]
  - Ascites [Recovered/Resolved]
